FAERS Safety Report 8003911-3 (Version None)
Quarter: 2011Q4

REPORT INFORMATION
  Report Type: 
  Country: None (occurrence: None)
  Receive Date: 20111222
  Receipt Date: 20111213
  Transmission Date: 20120403
  Serious: Yes (Hospitalization, Other)
  Sender: FDA-Public Use
  Company Number: US-ASTRAZENECA-2011SE47677

PATIENT
  Age: 75 Year
  Sex: Female
  Weight: 90.7 kg

DRUGS (11)
  1. NORTRIPTYLINE HCL [Concomitant]
     Route: 048
  2. GLUCOSAMINE [Concomitant]
     Route: 048
  3. EXTRA STRENGTH TYLENOL [Concomitant]
     Route: 048
  4. SPIRIVA [Concomitant]
     Route: 055
  5. CHONDROITIN [Concomitant]
     Route: 048
  6. TRIAMTERENE AND HYDROCHLOROTHIAZIDE [Concomitant]
     Dosage: 37.525 MG DAILY
     Route: 048
  7. OXYGEN [Concomitant]
  8. CALCIUM CARBONATE [Concomitant]
     Route: 048
  9. SYMBICORT [Suspect]
     Dosage: 2 PUFFS TWO TIMES A DAY
     Route: 055
  10. LOVENOX [Concomitant]
     Route: 058
  11. NEXIUM [Suspect]
     Route: 048

REACTIONS (5)
  - FALL [None]
  - GASTROOESOPHAGEAL REFLUX DISEASE [None]
  - EMPHYSEMA [None]
  - ANKLE FRACTURE [None]
  - HYPERTENSION [None]
